FAERS Safety Report 10696949 (Version 1)
Quarter: 2015Q1

REPORT INFORMATION
  Report Type: Spontaneous
  Country: US (occurrence: US)
  Receive Date: 20150108
  Receipt Date: 20150108
  Transmission Date: 20150721
  Serious: Yes (Death, Other)
  Sender: FDA-Public Use
  Company Number: US-CIPLA LTD.-2014US03097

PATIENT

DRUGS (3)
  1. AMLODIPINE [Suspect]
     Active Substance: AMLODIPINE BESYLATE
     Indication: HYPERTENSION
  2. LISINOPRIL. [Suspect]
     Active Substance: LISINOPRIL
     Indication: HYPERTENSION
  3. METOPROLOL [Suspect]
     Active Substance: METOPROLOL
     Indication: HYPERTENSION
     Dosage: UNK

REACTIONS (11)
  - Intentional overdose [Unknown]
  - Renal failure [Unknown]
  - Acidosis [Unknown]
  - Hypoxia [Unknown]
  - Hypotension [Unknown]
  - Bradycardia [Unknown]
  - Hyperkalaemia [Unknown]
  - Death [Fatal]
  - Metabolic disorder [Unknown]
  - Pulmonary oedema [Unknown]
  - Fluid overload [Unknown]
